FAERS Safety Report 8310402-9 (Version None)
Quarter: 2012Q2

REPORT INFORMATION
  Report Type: 
  Country: None (occurrence: None)
  Receive Date: 20120425
  Receipt Date: 20120417
  Transmission Date: 20120825
  Serious: Yes (Other)
  Sender: FDA-Public Use
  Company Number: US-JNJFOC-20120307152

PATIENT
  Sex: Male
  Weight: 170.1 kg

DRUGS (15)
  1. ASPIRIN [Concomitant]
     Indication: PRODUCT USED FOR UNKNOWN INDICATION
  2. ZOLOFT [Concomitant]
     Indication: PRODUCT USED FOR UNKNOWN INDICATION
  3. DIOVAN HCT [Concomitant]
     Indication: HYPERTENSION
  4. ERGOTEIN [Concomitant]
     Route: 065
  5. UNKNOWN MEDICATION [Concomitant]
     Route: 065
  6. COMBIGAN [Concomitant]
     Indication: ABNORMAL SENSATION IN EYE
     Route: 031
  7. TIMOLOL MALEATE [Concomitant]
     Indication: PRODUCT USED FOR UNKNOWN INDICATION
  8. LOPRESSOR [Concomitant]
     Indication: CARDIAC DISORDER
     Route: 048
  9. STELARA [Suspect]
     Indication: PSORIASIS
     Route: 058
     Dates: start: 20120212
  10. LASIX [Concomitant]
     Indication: DIURETIC THERAPY
     Route: 048
  11. MULTI-VITAMINS [Concomitant]
     Indication: NUTRITIONAL SUPPORT
  12. CELEBREX [Concomitant]
     Indication: ARTHRITIS
     Route: 048
  13. LOSARTAN POTASSIUM [Concomitant]
     Route: 065
  14. NOVOLIN N [Concomitant]
     Indication: DIABETES MELLITUS
     Route: 065
  15. NOVOLOG [Concomitant]
     Indication: DIABETES MELLITUS

REACTIONS (5)
  - WEIGHT INCREASED [None]
  - PHOTOPHOBIA [None]
  - DRUG INEFFECTIVE [None]
  - PSORIASIS [None]
  - BLOOD GLUCOSE INCREASED [None]
